FAERS Safety Report 19758048 (Version 4)
Quarter: 2022Q3

REPORT INFORMATION
  Report Type: Report from Study
  Country: CN (occurrence: None)
  Receive Date: 20210827
  Receipt Date: 20220708
  Transmission Date: 20221026
  Serious: Yes (Hospitalization)
  Sender: FDA-Public Use
  Company Number: 2021A679542

PATIENT
  Age: 23397 Day
  Sex: Male

DRUGS (57)
  1. DURVALUMAB [Suspect]
     Active Substance: DURVALUMAB
     Indication: Non-small cell lung cancer
     Route: 042
     Dates: start: 20210804, end: 20210804
  2. DURVALUMAB [Suspect]
     Active Substance: DURVALUMAB
     Indication: Non-small cell lung cancer
     Route: 042
     Dates: start: 20210825, end: 20210825
  3. DURVALUMAB [Suspect]
     Active Substance: DURVALUMAB
     Indication: Non-small cell lung cancer
     Route: 042
     Dates: start: 20210915, end: 20210915
  4. DURVALUMAB [Suspect]
     Active Substance: DURVALUMAB
     Indication: Non-small cell lung cancer
     Route: 042
     Dates: start: 20211111, end: 20211111
  5. DURVALUMAB [Suspect]
     Active Substance: DURVALUMAB
     Indication: Non-small cell lung cancer
     Route: 042
     Dates: start: 20211223, end: 20211223
  6. DURVALUMAB [Suspect]
     Active Substance: DURVALUMAB
     Indication: Non-small cell lung cancer
     Route: 042
     Dates: start: 20220117, end: 20220117
  7. DURVALUMAB [Suspect]
     Active Substance: DURVALUMAB
     Indication: Non-small cell lung cancer
     Route: 042
     Dates: start: 20220215, end: 20220215
  8. DURVALUMAB [Suspect]
     Active Substance: DURVALUMAB
     Indication: Non-small cell lung cancer
     Route: 042
     Dates: start: 20220314, end: 20220314
  9. DURVALUMAB [Suspect]
     Active Substance: DURVALUMAB
     Indication: Non-small cell lung cancer
     Route: 042
     Dates: start: 20220407, end: 20220407
  10. DURVALUMAB [Suspect]
     Active Substance: DURVALUMAB
     Indication: Non-small cell lung cancer
     Route: 042
     Dates: start: 20220505, end: 20220505
  11. DURVALUMAB [Suspect]
     Active Substance: DURVALUMAB
     Indication: Non-small cell lung cancer
     Route: 042
     Dates: start: 20220602, end: 20220602
  12. CISPLATIN [Suspect]
     Active Substance: CISPLATIN
     Indication: Non-small cell lung cancer
     Route: 042
     Dates: start: 20210804, end: 20210804
  13. CISPLATIN [Suspect]
     Active Substance: CISPLATIN
     Indication: Non-small cell lung cancer
     Route: 042
     Dates: start: 20210825, end: 20210825
  14. CISPLATIN [Suspect]
     Active Substance: CISPLATIN
     Indication: Non-small cell lung cancer
     Route: 042
     Dates: start: 20210915, end: 20210915
  15. GEMCITABINE [Suspect]
     Active Substance: GEMCITABINE
     Indication: Non-small cell lung cancer
     Route: 042
     Dates: start: 20210804, end: 20210804
  16. GEMCITABINE [Suspect]
     Active Substance: GEMCITABINE
     Indication: Non-small cell lung cancer
     Route: 042
     Dates: start: 20210825, end: 20210825
  17. GEMCITABINE [Suspect]
     Active Substance: GEMCITABINE
     Indication: Non-small cell lung cancer
     Route: 042
     Dates: start: 20210902, end: 20210902
  18. GEMCITABINE [Suspect]
     Active Substance: GEMCITABINE
     Indication: Non-small cell lung cancer
     Route: 042
     Dates: start: 20210915, end: 20210915
  19. INVESTIGATIONAL PRODUCT [Suspect]
     Active Substance: INVESTIGATIONAL PRODUCT
     Indication: Non-small cell lung cancer
  20. IPRATROPIUM BROMIDE [Concomitant]
     Active Substance: IPRATROPIUM BROMIDE
     Indication: Pneumonia
     Route: 055
     Dates: start: 20210724, end: 20210726
  21. IPRATROPIUM BROMIDE [Concomitant]
     Active Substance: IPRATROPIUM BROMIDE
     Indication: Inflammation
     Route: 055
     Dates: start: 20210724, end: 20210726
  22. BUDESONIDE [Concomitant]
     Active Substance: BUDESONIDE
     Indication: Pneumonia
     Route: 055
     Dates: start: 20210724, end: 20210726
  23. BUDESONIDE [Concomitant]
     Active Substance: BUDESONIDE
     Indication: Inflammation
     Route: 055
     Dates: start: 20210724, end: 20210726
  24. ACETYLCYSTEINE [Concomitant]
     Active Substance: ACETYLCYSTEINE
     Indication: Pneumonia
     Dosage: 1.000 BRANCH TWO TIMES A DAY
     Route: 055
     Dates: start: 20210724, end: 20210726
  25. LACTULOSE [Concomitant]
     Active Substance: LACTULOSE
     Indication: Constipation
     Route: 048
     Dates: start: 20210724, end: 20210726
  26. LACTULOSE [Concomitant]
     Active Substance: LACTULOSE
     Indication: Diarrhoea
     Route: 048
     Dates: start: 20210724, end: 20210726
  27. DICLOFENAC SODIUM [Concomitant]
     Active Substance: DICLOFENAC SODIUM
     Indication: Analgesic therapy
     Dosage: 25.0MG ONCE/SINGLE ADMINISTRATION
     Route: 048
     Dates: start: 20210723, end: 20210723
  28. DICLOFENAC SODIUM [Concomitant]
     Active Substance: DICLOFENAC SODIUM
     Indication: Analgesic therapy
     Dosage: 25.0MG ONCE/SINGLE ADMINISTRATION
     Route: 048
     Dates: start: 20210724, end: 20210731
  29. TRAMADOL [Concomitant]
     Active Substance: TRAMADOL
     Indication: Analgesic therapy
     Route: 048
     Dates: start: 20210724, end: 20210731
  30. TRAMADOL [Concomitant]
     Active Substance: TRAMADOL
     Indication: Analgesic therapy
     Dosage: 100.000 MG ST
     Route: 048
     Dates: start: 20210724, end: 20210726
  31. COMPOUND AMMONIUM CHLORIDE [Concomitant]
     Indication: Pneumonia
     Dosage: 10.0ML ONCE/SINGLE ADMINISTRATION
     Route: 048
     Dates: start: 20210724, end: 20210724
  32. COMPOUND AMMONIUM CHLORIDE [Concomitant]
     Indication: Cough
     Dosage: 10.0ML ONCE/SINGLE ADMINISTRATION
     Route: 048
     Dates: start: 20210724, end: 20210724
  33. INDOMETHACIN [Concomitant]
     Active Substance: INDOMETHACIN
     Indication: Analgesic therapy
     Dosage: 50.0MG ONCE/SINGLE ADMINISTRATION
     Route: 050
     Dates: start: 20210725, end: 20210725
  34. INDOMETHACIN [Concomitant]
     Active Substance: INDOMETHACIN
     Indication: Analgesic therapy
     Dosage: 50.0MG ONCE/SINGLE ADMINISTRATION
     Route: 050
     Dates: start: 20210726, end: 20210726
  35. GLUTATHIONE [Concomitant]
     Active Substance: GLUTATHIONE
     Indication: Liver transplant rejection
     Route: 042
     Dates: start: 20210805, end: 20210806
  36. GLUTATHIONE [Concomitant]
     Active Substance: GLUTATHIONE
     Indication: Liver transplant rejection
     Route: 042
     Dates: start: 20210804, end: 20210804
  37. COLCHICINE [Concomitant]
     Active Substance: COLCHICINE
     Indication: Analgesic therapy
     Route: 048
     Dates: start: 20210806, end: 20210812
  38. DEXAMETHASONE [Concomitant]
     Active Substance: DEXAMETHASONE
     Indication: Nausea
     Dosage: 5.0MG ONCE/SINGLE ADMINISTRATION
     Route: 042
     Dates: start: 20210804, end: 20210804
  39. DEXAMETHASONE [Concomitant]
     Active Substance: DEXAMETHASONE
     Indication: Vomiting
     Dosage: 5.0MG ONCE/SINGLE ADMINISTRATION
     Route: 042
     Dates: start: 20210804, end: 20210804
  40. AMIFOSTINE [Concomitant]
     Active Substance: AMIFOSTINE
     Indication: Kidney small
     Dosage: 0.8G ONCE/SINGLE ADMINISTRATION
     Route: 042
     Dates: start: 20210804, end: 20210804
  41. TORSEMIDE [Concomitant]
     Active Substance: TORSEMIDE
     Indication: Kidney small
     Dosage: 20.0MG ONCE/SINGLE ADMINISTRATION
     Route: 042
     Dates: start: 20210804, end: 20210804
  42. TORSEMIDE [Concomitant]
     Active Substance: TORSEMIDE
     Indication: Torsion of the urethra
     Dosage: 20.0MG ONCE/SINGLE ADMINISTRATION
     Route: 042
     Dates: start: 20210804, end: 20210804
  43. TORSEMIDE [Concomitant]
     Active Substance: TORSEMIDE
     Indication: Chemotherapy
     Dosage: 20.0MG ONCE/SINGLE ADMINISTRATION
     Route: 042
     Dates: start: 20210804, end: 20210804
  44. PROMETHAZINE [Concomitant]
     Active Substance: PROMETHAZINE HYDROCHLORIDE
     Indication: Nausea
     Dosage: 25.0MG ONCE/SINGLE ADMINISTRATION
     Route: 030
     Dates: start: 20210804, end: 20210804
  45. TROPISETRON [Concomitant]
     Active Substance: TROPISETRON
     Indication: Nausea
     Dosage: 5.0MG ONCE/SINGLE ADMINISTRATION
     Route: 042
     Dates: start: 20210804, end: 20210804
  46. TROPISETRON [Concomitant]
     Active Substance: TROPISETRON
     Indication: Vomiting
     Dosage: 5.0MG ONCE/SINGLE ADMINISTRATION
     Route: 042
     Dates: start: 20210804, end: 20210804
  47. VITAMIN C [Concomitant]
     Active Substance: ASCORBIC ACID
     Indication: Vitamin supplementation
     Dosage: 2.0G ONCE/SINGLE ADMINISTRATION
     Route: 042
     Dates: start: 20210804, end: 20210804
  48. 10% OF POTASSIUM CHLORIDE [Concomitant]
     Indication: Mineral supplementation
     Dosage: 20.0ML ONCE/SINGLE ADMINISTRATION
     Route: 042
     Dates: start: 20210804, end: 20210804
  49. 10% OF POTASSIUM CHLORIDE [Concomitant]
     Indication: Blood potassium
     Dosage: 20.0ML ONCE/SINGLE ADMINISTRATION
     Route: 042
     Dates: start: 20210804, end: 20210804
  50. 10% OF POTASSIUM CHLORIDE [Concomitant]
     Indication: Infusion
     Dosage: 20.0ML ONCE/SINGLE ADMINISTRATION
     Route: 042
     Dates: start: 20210804, end: 20210804
  51. THROMBOPOIETIN [Concomitant]
     Active Substance: THROMBOPOIETIN
     Indication: Thrombocytopenia
     Dosage: UNKNOWN
     Dates: start: 202108, end: 202108
  52. CARBAZOCHROME SODIUM SULFONATE [Concomitant]
     Active Substance: CARBAZOCHROME SODIUM SULFONATE
     Indication: Haemorrhage
     Dosage: UNKNOWN
     Route: 042
     Dates: start: 202108, end: 202108
  53. HUMAN GRANULOTROPHIL STIMULATING FACTOR INJECTION [Concomitant]
     Indication: Job change
     Dosage: UNKNOWN
     Route: 042
     Dates: start: 202108, end: 202108
  54. HUMAN GRANULOTROPHIL STIMULATING FACTOR INJECTION [Concomitant]
     Indication: Leukopenia
     Dosage: UNKNOWN
     Route: 042
     Dates: start: 202108, end: 202108
  55. ESOMEPRAZOLE MAGNESIUM ENTERIC COATED TABLE [Concomitant]
     Indication: Protein total
     Dosage: UNKNOWN
     Dates: start: 202108, end: 202108
  56. ARROSULFONATE SODIUM CHLORIDE INJECTION [Concomitant]
     Indication: Prophylaxis of nausea and vomiting
     Dates: start: 20210801, end: 20210801
  57. HUMAN GRANULOTROPHIL STIMULATING FACTOR INJECTION, GLUTATHIONE FOR ... [Concomitant]
     Dates: start: 20210801, end: 20210801

REACTIONS (1)
  - Myelosuppression [Recovered/Resolved]

NARRATIVE: CASE EVENT DATE: 20210810
